FAERS Safety Report 8762910 (Version 1)
Quarter: 2012Q4

REPORT INFORMATION
  Report Type: Spontaneous
  Country: US (occurrence: None)
  Receive Date: 20120830
  Receipt Date: 20120830
  Transmission Date: 20130627
  Serious: Yes (Disabling, Other)
  Sender: FDA-Public Use
  Company Number: None

PATIENT
  Age: 7 Year
  Sex: Female
  Weight: 19.9 kg

DRUGS (1)
  1. VIOKASE [Suspect]
     Route: 050
     Dates: start: 20120823, end: 20120829

REACTIONS (3)
  - Erythema [None]
  - Blister [None]
  - Proctalgia [None]
